FAERS Safety Report 18586459 (Version 2)
Quarter: 2020Q4

REPORT INFORMATION
  Report Type: Spontaneous
  Country: US (occurrence: US)
  Receive Date: 20201207
  Receipt Date: 20201211
  Transmission Date: 20210114
  Serious: No
  Sender: FDA-Public Use
  Company Number: US-PFIZER INC-2020473768

PATIENT
  Age: 57 Year
  Sex: Male
  Weight: 81.65 kg

DRUGS (1)
  1. GENOTROPIN [Suspect]
     Active Substance: SOMATROPIN
     Indication: HORMONE REPLACEMENT THERAPY
     Dosage: 0.4 MG, DAILY (0.4 MG ONCE DAILY)

REACTIONS (2)
  - Drug dose omission by device [Unknown]
  - Device occlusion [Unknown]
